FAERS Safety Report 6612893-8 (Version None)
Quarter: 2010Q1

REPORT INFORMATION
  Report Type: 
  Country: None (occurrence: None)
  Receive Date: 20100303
  Receipt Date: 20100217
  Transmission Date: 20100710
  Serious: Yes (Hospitalization)
  Sender: FDA-Public Use
  Company Number: FR-MYLANLABS-2010S1002573

PATIENT
  Age: 7 Year
  Sex: Male

DRUGS (4)
  1. METHOTREXATE [Suspect]
     Indication: DRUG USE FOR UNKNOWN INDICATION
     Route: 042
     Dates: start: 20091209, end: 20091210
  2. VINCRISTINE [Concomitant]
  3. CYTARABINE [Concomitant]
  4. ASPARAGINASE [Concomitant]

REACTIONS (4)
  - DIARRHOEA [None]
  - ORAL DISORDER [None]
  - RASH VESICULAR [None]
  - VOMITING [None]
